FAERS Safety Report 9012313 (Version 2)
Quarter: 2013Q1

REPORT INFORMATION
  Report Type: Report from Study
  Country: DE (occurrence: DE)
  Receive Date: 20130114
  Receipt Date: 20130124
  Transmission Date: 20140127
  Serious: Yes (Hospitalization, Other)
  Sender: FDA-Public Use
  Company Number: DE-BAXTER-2013BAX000344

PATIENT
  Sex: Female

DRUGS (18)
  1. ENDOXAN 1G [Suspect]
     Indication: B-CELL LYMPHOMA
     Route: 042
     Dates: start: 20121120, end: 20121120
  2. ENDOXAN 1G [Suspect]
     Route: 042
     Dates: start: 20121204, end: 20121204
  3. ENDOXAN 1G [Suspect]
     Route: 042
     Dates: start: 20121221, end: 20121221
  4. PREDNISONE [Suspect]
     Indication: B-CELL LYMPHOMA
     Route: 065
     Dates: start: 20121107, end: 20121114
  5. PREDNISONE [Suspect]
     Route: 048
     Dates: start: 20121204, end: 20121208
  6. PREDNISONE [Suspect]
     Route: 048
     Dates: start: 20121221, end: 20121221
  7. RITUXIMAB [Suspect]
     Indication: B-CELL LYMPHOMA
     Route: 042
     Dates: start: 20121109, end: 20121123
  8. RITUXIMAB [Suspect]
     Route: 065
     Dates: start: 20121203, end: 20121203
  9. RITUXIMAB [Suspect]
     Route: 042
     Dates: start: 20121220, end: 20121220
  10. DOXORUBICIN [Suspect]
     Indication: B-CELL LYMPHOMA
     Route: 042
     Dates: start: 20121120, end: 20121120
  11. DOXORUBICIN [Suspect]
     Route: 042
     Dates: start: 20121204, end: 20121204
  12. DOXORUBICIN [Suspect]
     Route: 042
     Dates: start: 20121221, end: 20121221
  13. VINCRISTINE [Suspect]
     Indication: B-CELL LYMPHOMA
     Route: 042
     Dates: start: 20121120, end: 20121120
  14. VINCRISTINE [Suspect]
     Route: 042
     Dates: start: 20121206, end: 20121206
  15. VINCRISTINE [Suspect]
     Route: 042
     Dates: start: 20121221, end: 20121221
  16. PEGFILGRASTIM [Suspect]
     Indication: B-CELL LYMPHOMA
     Route: 058
     Dates: start: 20121123, end: 20121123
  17. PEGFILGRASTIM [Suspect]
     Route: 058
     Dates: start: 20121207, end: 20121207
  18. PEGFILGRASTIM [Suspect]
     Route: 058
     Dates: start: 20121224, end: 20121224

REACTIONS (4)
  - Cholestasis [Recovered/Resolved]
  - Abdominal pain [Recovered/Resolved]
  - Fatigue [Recovered/Resolved]
  - Neutropenia [Unknown]
